FAERS Safety Report 19086565 (Version 3)
Quarter: 2025Q3

REPORT INFORMATION
  Report Type: Spontaneous
  Country: RU (occurrence: RU)
  Receive Date: 20210402
  Receipt Date: 20250728
  Transmission Date: 20251021
  Serious: Yes (Hospitalization)
  Sender: ORGANON
  Company Number: RU-ORGANON-O2104RUS000086

PATIENT
  Age: 47 Year
  Sex: Female
  Weight: 76 kg

DRUGS (6)
  1. DIPROSPAN [Suspect]
     Active Substance: BETAMETHASONE DIPROPIONATE\BETAMETHASONE SODIUM PHOSPHATE
     Indication: Nodal osteoarthritis
     Route: 065
     Dates: start: 20191228, end: 20191228
  2. OFATUMUMAB [Suspect]
     Active Substance: OFATUMUMAB
     Indication: Relapsing multiple sclerosis
     Dosage: 20 MILLIGRAM, Q4W (SOLUTION FOR INJECTION IN PRE-FILLED SYRINGE)
     Route: 058
     Dates: start: 20190703, end: 20191217
  3. PANCREATIN [Concomitant]
     Active Substance: PANCRELIPASE
     Dates: start: 20191213, end: 20191213
  4. MELOXICAM [Concomitant]
     Active Substance: MELOXICAM
     Dates: start: 20191201, end: 20191231
  5. TRIMEDAT [Concomitant]
     Dates: start: 20191213, end: 20191213
  6. URSODIOL [Concomitant]
     Active Substance: URSODIOL
     Dates: start: 20191213, end: 20191213

REACTIONS (1)
  - Diverticulum [Not Recovered/Not Resolved]

NARRATIVE: CASE EVENT DATE: 20191231
